FAERS Safety Report 7490135-1 (Version None)
Quarter: 2011Q2

REPORT INFORMATION
  Report Type: 
  Country: None (occurrence: None)
  Receive Date: 20110519
  Receipt Date: 20110516
  Transmission Date: 20111010
  Serious: Yes (Other)
  Sender: FDA-Public Use
  Company Number: US-PFIZER INC-2011038405

PATIENT
  Sex: Female

DRUGS (5)
  1. HYDROCODONE [Concomitant]
     Indication: PAIN
     Dosage: UNK,
     Dates: start: 20060101
  2. CHANTIX [Suspect]
     Indication: SMOKING CESSATION THERAPY
     Dosage: STARTING PACK AND 1MG CONTINUING PACK
     Dates: start: 20090701, end: 20090916
  3. PREDNISONE [Concomitant]
     Indication: EYELID OEDEMA
  4. MUCINEX [Concomitant]
     Indication: CHRONIC SINUSITIS
     Dosage: UNK,
     Dates: start: 20080101, end: 20110101
  5. PREDNISONE [Concomitant]
     Indication: PAIN
     Dosage: UNK,
     Dates: start: 20080101, end: 20110101

REACTIONS (8)
  - AGITATION [None]
  - MOOD SWINGS [None]
  - ANXIETY [None]
  - ANGER [None]
  - HOSTILITY [None]
  - DEPRESSION [None]
  - PANIC ATTACK [None]
  - AGGRESSION [None]
